FAERS Safety Report 11583548 (Version 1)
Quarter: 2015Q3

REPORT INFORMATION
  Report Type: Spontaneous
  Country: US (occurrence: None)
  Receive Date: 20150930
  Receipt Date: 20150930
  Transmission Date: 20151125
  Serious: Yes (Hospitalization)
  Sender: FDA-Public Use
  Company Number: None

PATIENT
  Age: 67 Year
  Sex: Female
  Weight: 67.3 kg

DRUGS (39)
  1. AVYCAZ [Suspect]
     Active Substance: AVIBACTAM SODIUM\CEFTAZIDIME
     Indication: WOUND INFECTION
     Route: 042
     Dates: start: 20150825, end: 20150901
  2. CARVEDILOL. [Concomitant]
     Active Substance: CARVEDILOL
  3. DUONEB INH [Concomitant]
  4. METRONIDAZOLE. [Concomitant]
     Active Substance: METRONIDAZOLE
  5. PRIMIDONE. [Concomitant]
     Active Substance: PRIMIDONE
  6. INSULIN LISPRO [Concomitant]
     Active Substance: INSULIN LISPRO
  7. PERCOCET [Concomitant]
     Active Substance: ACETAMINOPHEN\OXYCODONE HYDROCHLORIDE
  8. ERGOCALCIFEROL. [Concomitant]
     Active Substance: ERGOCALCIFEROL
  9. SODIUM CHLORIDE (NS) [Concomitant]
  10. WARFARIN [Concomitant]
     Active Substance: WARFARIN
  11. AMIODARONE DRIP [Concomitant]
  12. ALBUMIN [Concomitant]
     Active Substance: ALBUMIN (HUMAN)
  13. ALTEPLASE [Concomitant]
     Active Substance: ALTEPLASE
  14. INSULIN GLARGINE [Concomitant]
     Active Substance: INSULIN GLARGINE
  15. DOBUTAMINE [Concomitant]
     Active Substance: DOBUTAMINE\DOBUTAMINE HYDROCHLORIDE
  16. FAMOTIDINE. [Concomitant]
     Active Substance: FAMOTIDINE
  17. ZOFRAN [Concomitant]
     Active Substance: ONDANSETRON HYDROCHLORIDE
  18. HYDRALAZINE [Concomitant]
     Active Substance: HYDRALAZINE HYDROCHLORIDE
  19. ASPIRIN. [Concomitant]
     Active Substance: ASPIRIN
  20. LINEZOLID. [Concomitant]
     Active Substance: LINEZOLID
  21. MORPHINE [Concomitant]
     Active Substance: MORPHINE
  22. LORAZEPAM. [Concomitant]
     Active Substance: LORAZEPAM
  23. FENTANYL. [Concomitant]
     Active Substance: FENTANYL
  24. AVYCAZ [Suspect]
     Active Substance: AVIBACTAM SODIUM\CEFTAZIDIME
     Indication: KLEBSIELLA INFECTION
     Route: 042
     Dates: start: 20150825, end: 20150901
  25. ATORVASTATIN [Concomitant]
     Active Substance: ATORVASTATIN
  26. BUMETANIDE. [Concomitant]
     Active Substance: BUMETANIDE
  27. SULFAMYLON [Concomitant]
     Active Substance: MAFENIDE ACETATE
  28. MULTIVITE/MINERALS [Concomitant]
  29. CITRATE FOR DIALYSIS CATHETER PACKING [Concomitant]
  30. HUMALIN N INSULIN [Concomitant]
  31. PANTOPRAZOLE [Concomitant]
     Active Substance: PANTOPRAZOLE SODIUM
  32. MILK OF MAGNESIA [Concomitant]
     Active Substance: MAGNESIUM HYDROXIDE
  33. LASIX [Concomitant]
     Active Substance: FUROSEMIDE
  34. DAKINS SOLUTION [Concomitant]
  35. BUSPERONE [Concomitant]
  36. CALCIUM CARBONATE. [Concomitant]
     Active Substance: CALCIUM CARBONATE
  37. LEVOTHYROXINE. [Concomitant]
     Active Substance: LEVOTHYROXINE
  38. NOREPINEPHRINE [Concomitant]
     Active Substance: NOREPINEPHRINE\NOREPINEPHRINE BITARTRATE
  39. MICAFUNGIN [Concomitant]
     Active Substance: MICAFUNGIN

REACTIONS (1)
  - Haemolytic anaemia [None]

NARRATIVE: CASE EVENT DATE: 20150901
